FAERS Safety Report 5009728-6 (Version None)
Quarter: 2006Q2

REPORT INFORMATION
  Report Type: 
  Country: None (occurrence: None)
  Receive Date: 20060522
  Receipt Date: 20060509
  Transmission Date: 20061013
  Serious: Yes (Death, Life-Threatening)
  Sender: FDA-Public Use
  Company Number: 2006063621

PATIENT
  Age: 26 Year
  Sex: Female

DRUGS (6)
  1. CYTOTEC [Suspect]
     Indication: ILL-DEFINED DISORDER
     Dosage: 800 MCG (200 MCG, 2 IN 2 D), VAGINAL
     Route: 067
     Dates: start: 20060209
  2. TIAPRIDAL (TIAPRIDE) [Suspect]
     Indication: ILL-DEFINED DISORDER
     Dosage: 100 MG (100 MG, 1 IN 1 D), ORAL
     Route: 048
     Dates: start: 20060303, end: 20060317
  3. ESCITALOPRAM (ESCITALOPRAM) [Suspect]
     Indication: ILL-DEFINED DISORDER
     Dosage: 15 MG (15 MG, 1 IN 1 D), ORAL
     Route: 048
     Dates: start: 20060303, end: 20060317
  4. ABILIFY [Suspect]
     Indication: ILL-DEFINED DISORDER
     Dosage: 15 MG (15 MG, 1 IN 1 D), ORAL
     Route: 048
     Dates: start: 20060309, end: 20060317
  5. PRAZEPAM [Concomitant]
  6. IMOVANE (ZOPICLONE) [Concomitant]

REACTIONS (27)
  - ACCIDENT [None]
  - ANOXIA [None]
  - BACK PAIN [None]
  - BLOOD CREATINE PHOSPHOKINASE INCREASED [None]
  - BLOOD HUMAN CHORIONIC GONADOTROPIN POSITIVE [None]
  - CARDIAC FAILURE [None]
  - CARDIAC PROCEDURE COMPLICATION [None]
  - CARDIO-RESPIRATORY ARREST [None]
  - CHILLS [None]
  - CONVULSION [None]
  - CYANOSIS [None]
  - DELIRIUM [None]
  - DRUG EXPOSURE DURING PREGNANCY [None]
  - DYSPNOEA [None]
  - FEELING COLD [None]
  - FEELING HOT [None]
  - LACTIC ACIDOSIS [None]
  - MALAISE [None]
  - METRORRHAGIA [None]
  - MULTI-ORGAN FAILURE [None]
  - NECROTISING COLITIS [None]
  - OBSTETRIC PROCEDURE COMPLICATION [None]
  - PALLOR [None]
  - PYREXIA [None]
  - RETAINED PLACENTA OR MEMBRANES [None]
  - RHABDOMYOLYSIS [None]
  - TROPONIN INCREASED [None]
